FAERS Safety Report 20971851 (Version 1)
Quarter: 2022Q2

REPORT INFORMATION
  Report Type: Spontaneous
  Country: US (occurrence: US)
  Receive Date: 20220616
  Receipt Date: 20220616
  Transmission Date: 20220720
  Serious: No
  Sender: FDA-Public Use
  Company Number: US-SA-SAC20220614000263

PATIENT
  Age: 16 Year
  Sex: Male

DRUGS (26)
  1. LUMIZYME [Suspect]
     Active Substance: ALGLUCOSIDASE ALFA
     Indication: Glycogen storage disease type II
     Dosage: 800 MG, QOW
     Route: 042
     Dates: start: 20220218
  2. ACETYLCYSTEINE [Concomitant]
     Active Substance: ACETYLCYSTEINE
  3. NORVASC [Concomitant]
     Active Substance: AMLODIPINE BESYLATE
  4. ACETAMINOPHEN [Concomitant]
     Active Substance: ACETAMINOPHEN
  5. DIPHENHYDRAMINE [Concomitant]
     Active Substance: DIPHENHYDRAMINE
  6. DIPHENHYDRAMINE HYDROCHLORIDE [Concomitant]
     Active Substance: DIPHENHYDRAMINE HYDROCHLORIDE
  7. HEPARIN [Concomitant]
     Active Substance: HEPARIN SODIUM
  8. SODIUM CHLORIDE [Concomitant]
     Active Substance: SODIUM CHLORIDE
  9. STERILE WATER [Concomitant]
     Active Substance: WATER
  10. EPINEPHRINE [Concomitant]
     Active Substance: EPINEPHRINE
  11. SOLU-MEDROL [Concomitant]
     Active Substance: METHYLPREDNISOLONE SODIUM SUCCINATE
  12. TOBI [Concomitant]
     Active Substance: TOBRAMYCIN
  13. PULMICORT TURBUHALER [Concomitant]
     Active Substance: BUDESONIDE
  14. DIASTAT ACUDIAL [Concomitant]
     Active Substance: DIAZEPAM
  15. LOPERAMIDE [Concomitant]
     Active Substance: LOPERAMIDE
  16. HYDROCORTISONE [Concomitant]
     Active Substance: HYDROCORTISONE
  17. XOPENEX [Concomitant]
     Active Substance: LEVALBUTEROL HYDROCHLORIDE
  18. NEPHRO-VITE [ASCORBIC ACID;BIOTIN;CYANOCOBALAMIN;FOLIC ACID;NICOTINAMI [Concomitant]
  19. CETYLPYRIDINIUM CHLORIDE [Concomitant]
     Active Substance: CETYLPYRIDINIUM CHLORIDE
  20. MIRALAX [Concomitant]
     Active Substance: POLYETHYLENE GLYCOL 3350
  21. PHENOBARBITAL [Concomitant]
     Active Substance: PHENOBARBITAL
  22. OFLOXACIN [Concomitant]
     Active Substance: OFLOXACIN
  23. RENVELA [Concomitant]
     Active Substance: SEVELAMER CARBONATE
  24. OMEPRAZOLE [Concomitant]
     Active Substance: OMEPRAZOLE
  25. CULTURELLE [Concomitant]
     Active Substance: LACTOBACILLUS RHAMNOSUS
  26. CEPHALEXIN [Concomitant]
     Active Substance: CEPHALEXIN

REACTIONS (1)
  - Heart rate increased [Unknown]

NARRATIVE: CASE EVENT DATE: 20220101
